FAERS Safety Report 7299173-5 (Version None)
Quarter: 2010Q4

REPORT INFORMATION
  Report Type: 
  Country: None (occurrence: None)
  Receive Date: 20101223
  Receipt Date: 20100831
  Transmission Date: 20110411
  Serious: Yes (Other)
  Sender: FDA-Public Use
  Company Number: 247365USA

PATIENT
  Age: 22 Year
  Sex: Female

DRUGS (3)
  1. PARAGARD T 380A [Suspect]
     Indication: CONTRACEPTION
     Dosage: I.U.
     Dates: start: 20060101
  2. AMITRIPTYLINE [Concomitant]
  3. KETOROLAC [Concomitant]

REACTIONS (5)
  - ABORTION SPONTANEOUS [None]
  - DRUG INEFFECTIVE [None]
  - METRORRHAGIA [None]
  - PELVIC PAIN [None]
  - VAGINAL HAEMORRHAGE [None]
